FAERS Safety Report 9494518 (Version 1)
Quarter: 2013Q3

REPORT INFORMATION
  Report Type: Spontaneous
  Country: US (occurrence: US)
  Receive Date: 20130903
  Receipt Date: 20130903
  Transmission Date: 20140515
  Serious: Yes (Death, Other)
  Sender: FDA-Public Use
  Company Number: US-PFIZER INC-2013252536

PATIENT
  Sex: Male

DRUGS (2)
  1. LYRICA [Suspect]
     Indication: NEUROPATHY PERIPHERAL
     Dosage: UNK, 4X/DAY
  2. LYRICA [Suspect]
     Indication: PARKINSON^S DISEASE

REACTIONS (3)
  - Off label use [Unknown]
  - Death [Fatal]
  - Inappropriate schedule of drug administration [Unknown]
